FAERS Safety Report 7241600-3 (Version None)
Quarter: 2011Q1

REPORT INFORMATION
  Report Type: 
  Country: None (occurrence: None)
  Receive Date: 20110124
  Receipt Date: 20110114
  Transmission Date: 20110831
  Serious: Yes (Other)
  Sender: FDA-Public Use
  Company Number: BR-ASTRAZENECA-2011SE02779

PATIENT
  Age: 54 Year
  Sex: Female
  Weight: 45 kg

DRUGS (3)
  1. SYMBICORT [Suspect]
     Indication: LUNG NEOPLASM
     Dosage: 320/9 UG, AS NEEDED
     Route: 055
     Dates: start: 20080101
  2. SYMBICORT [Suspect]
     Indication: DYSPNOEA
     Dosage: 320/9 UG, AS NEEDED
     Route: 055
     Dates: start: 20080101
  3. ARIMIDEX [Suspect]
     Indication: BREAST CANCER
     Route: 048
     Dates: start: 20010101, end: 20060101

REACTIONS (2)
  - BREAST CANCER METASTATIC [None]
  - METASTASES TO LUNG [None]
